FAERS Safety Report 7112914-2 (Version None)
Quarter: 2010Q4

REPORT INFORMATION
  Report Type: 
  Country: None (occurrence: None)
  Receive Date: 20101119
  Receipt Date: 20100713
  Transmission Date: 20110411
  Serious: No
  Sender: FDA-Public Use
  Company Number: US-BRISTOL-MYERS SQUIBB COMPANY-15189178

PATIENT
  Age: 73 Year
  Sex: Female

DRUGS (4)
  1. AVALIDE [Suspect]
     Dates: start: 20100101
  2. LISINOPRIL [Suspect]
     Dates: start: 20100101
  3. DIOVAN [Suspect]
     Dates: start: 20100101
  4. METOPROLOL [Concomitant]

REACTIONS (1)
  - ARTHRALGIA [None]
